FAERS Safety Report 21113855 (Version 1)
Quarter: 2022Q3

REPORT INFORMATION
  Report Type: Spontaneous
  Country: US (occurrence: US)
  Receive Date: 20220721
  Receipt Date: 20220721
  Transmission Date: 20221027
  Serious: No
  Sender: FDA-Public Use
  Company Number: US-BAUSCH-BL-2022-018019

PATIENT
  Age: 43 Year
  Sex: Male

DRUGS (2)
  1. XIFAXAN [Suspect]
     Active Substance: RIFAXIMIN
     Indication: Gastrointestinal disorder
     Route: 048
     Dates: start: 20220711
  2. PANTOPRAZOLE [Concomitant]
     Active Substance: PANTOPRAZOLE
     Indication: Product used for unknown indication

REACTIONS (3)
  - Vision blurred [Not Recovered/Not Resolved]
  - Dysarthria [Not Recovered/Not Resolved]
  - Mania [Not Recovered/Not Resolved]

NARRATIVE: CASE EVENT DATE: 20220712
